FAERS Safety Report 21548328 (Version 1)
Quarter: 2022Q4

REPORT INFORMATION
  Report Type: Spontaneous
  Country: US (occurrence: US)
  Receive Date: 20221103
  Receipt Date: 20221103
  Transmission Date: 20230113
  Serious: Yes (Other)
  Sender: FDA-Public Use
  Company Number: US-MYLANLABS-2022M1120031

PATIENT
  Age: 14 Year
  Sex: Female

DRUGS (1)
  1. CIPROFLOXACIN [Suspect]
     Active Substance: CIPROFLOXACIN
     Indication: Product used for unknown indication
     Dosage: 500 MILLIGRAM, 154 MG/KG
     Route: 048

REACTIONS (5)
  - Suicide attempt [Unknown]
  - Intentional product misuse [Unknown]
  - False positive investigation result [Unknown]
  - Abdominal discomfort [Unknown]
  - Intentional overdose [Unknown]
